FAERS Safety Report 4568043-5 (Version None)
Quarter: 2005Q1

REPORT INFORMATION
  Report Type: 
  Country: None (occurrence: None)
  Receive Date: 20050202
  Receipt Date: 20050123
  Transmission Date: 20050727
  Serious: Yes (Hospitalization)
  Sender: FDA-Public Use
  Company Number: PHBS2005IL01183

PATIENT
  Age: 51 Year
  Sex: Female

DRUGS (4)
  1. ZELMAC [Suspect]
     Indication: IRRITABLE BOWEL SYNDROME
     Dosage: 6 MG, BID
     Route: 048
     Dates: start: 20040714, end: 20040905
  2. MOTILIUM [Concomitant]
  3. ZOTON [Concomitant]
  4. NORMITEN [Suspect]
     Dosage: 25 MG, UNK

REACTIONS (8)
  - AMNESIA [None]
  - CLONUS [None]
  - DEPRESSED LEVEL OF CONSCIOUSNESS [None]
  - DIZZINESS [None]
  - HEADACHE [None]
  - NAUSEA [None]
  - PHOTOPSIA [None]
  - VISION BLURRED [None]
